FAERS Safety Report 5576509-4 (Version None)
Quarter: 2007Q4

REPORT INFORMATION
  Report Type: 
  Country: None (occurrence: None)
  Receive Date: 20071228
  Receipt Date: 20071217
  Transmission Date: 20080405
  Serious: Yes (Life-Threatening, Hospitalization)
  Sender: FDA-Public Use
  Company Number: B0302485A

PATIENT
  Age: 35 Year
  Sex: Male

DRUGS (4)
  1. ZYBAN [Suspect]
     Dosage: 12G SINGLE DOSE
     Route: 048
     Dates: start: 20030618
  2. IMOVANE [Suspect]
     Route: 048
  3. ZYPREXA [Concomitant]
     Indication: SCHIZOPHRENIA
     Route: 048
  4. LOXAPAC [Concomitant]

REACTIONS (29)
  - ALANINE AMINOTRANSFERASE INCREASED [None]
  - ASPARTATE AMINOTRANSFERASE INCREASED [None]
  - ATRIOVENTRICULAR BLOCK [None]
  - BLOOD CREATINE PHOSPHOKINASE INCREASED [None]
  - BRADYCARDIA [None]
  - BUNDLE BRANCH BLOCK RIGHT [None]
  - CARDIOGENIC SHOCK [None]
  - COMA [None]
  - CONDUCTION DISORDER [None]
  - CONVULSION [None]
  - CYTOLYTIC HEPATITIS [None]
  - DIARRHOEA [None]
  - ELECTROCARDIOGRAM QRS COMPLEX PROLONGED [None]
  - HEPATITIS [None]
  - HYPERTHERMIA MALIGNANT [None]
  - HYPOTENSION [None]
  - INTENTIONAL OVERDOSE [None]
  - LACTIC ACIDOSIS [None]
  - LUNG DISORDER [None]
  - MYDRIASIS [None]
  - NODAL RHYTHM [None]
  - RESPIRATORY FAILURE [None]
  - SEPTIC SHOCK [None]
  - SINUSITIS [None]
  - STATUS EPILEPTICUS [None]
  - SUICIDE ATTEMPT [None]
  - SUPRAVENTRICULAR TACHYCARDIA [None]
  - VENTRICULAR DYSFUNCTION [None]
  - VENTRICULAR HYPOKINESIA [None]
